FAERS Safety Report 5222012-0 (Version None)
Quarter: 2007Q1

REPORT INFORMATION
  Report Type: 
  Country: None (occurrence: None)
  Receive Date: 20070129
  Receipt Date: 20060330
  Transmission Date: 20070707
  Serious: No
  Sender: FDA-Public Use
  Company Number: US-GLAXOSMITHKLINE-A0599737A

PATIENT
  Age: 36 Year
  Sex: Male

DRUGS (1)
  1. WELLBUTRIN [Suspect]
     Indication: DEPRESSION
     Dosage: 150MG VARIABLE DOSE
     Route: 048
     Dates: start: 20050901

REACTIONS (1)
  - PERSONALITY CHANGE [None]
